FAERS Safety Report 6531161-6 (Version None)
Quarter: 2010Q1

REPORT INFORMATION
  Report Type: 
  Country: None (occurrence: None)
  Receive Date: 20100108
  Receipt Date: 20100105
  Transmission Date: 20100710
  Serious: Yes (Disabling)
  Sender: FDA-Public Use
  Company Number: US-BAYER-200943504NA

PATIENT
  Sex: Male

DRUGS (2)
  1. CIPRO [Suspect]
     Indication: PROSTATITIS
     Dates: start: 20091015, end: 20091020
  2. CIPRO [Suspect]
     Dates: start: 20090801

REACTIONS (6)
  - ABASIA [None]
  - ANXIETY [None]
  - EYE PAIN [None]
  - PAIN IN EXTREMITY [None]
  - TENDON PAIN [None]
  - TINNITUS [None]
